FAERS Safety Report 7579565-7 (Version None)
Quarter: 2011Q2

REPORT INFORMATION
  Report Type: 
  Country: None (occurrence: None)
  Receive Date: 20110622
  Receipt Date: 20110607
  Transmission Date: 20111010
  Serious: Yes (Congenital Anomaly, Other)
  Sender: FDA-Public Use
  Company Number: AUR-APU-2011-01218

PATIENT
  Sex: Male
  Weight: 2.608 kg

DRUGS (4)
  1. RIBAVIRIN [Suspect]
     Indication: PRODUCT USED FOR UNKNOWN INDICATION
     Dosage: TRANSPLACENTAL
     Route: 064
     Dates: start: 20090612, end: 20100514
  2. ZYRTEC (CETIRIZINE HYDROCHLOIRDE) [Concomitant]
  3. PEGINTERFERON ALFA-2A [Suspect]
     Indication: PRODUCT USED FOR UNKNOWN INDICATION
     Dosage: (80 MCG,1 WK), TRANSPLACENTAL
     Route: 064
     Dates: start: 20090612, end: 20100507
  4. PROLOSEC (OMEPRAZOLE) [Concomitant]

REACTIONS (6)
  - UMBILICAL CORD ABNORMALITY [None]
  - HAEMOGLOBIN DECREASED [None]
  - VARICOSE VEIN [None]
  - CAESAREAN SECTION [None]
  - MATERNAL DRUGS AFFECTING FOETUS [None]
  - JAUNDICE NEONATAL [None]
